FAERS Safety Report 7371666-1 (Version None)
Quarter: 2011Q1

REPORT INFORMATION
  Report Type: 
  Country: None (occurrence: None)
  Receive Date: 20110324
  Receipt Date: 20100825
  Transmission Date: 20110831
  Serious: No
  Sender: FDA-Public Use
  Company Number: US-TYCO HEALTHCARE/MALLINCKRODT-T201001884

PATIENT
  Age: 56 Year
  Sex: Male
  Weight: 98.866 kg

DRUGS (3)
  1. ATENOLOL [Suspect]
     Indication: HYPERTENSION
     Dosage: 2 TABS AM, 1 TAB PM
     Route: 048
     Dates: start: 20050101
  2. ACETAMINOPHEN AND HYDROCODONE BITARTRATE [Suspect]
     Dosage: 1 TAB 5 TIMES DAILY
     Route: 048
     Dates: start: 20070101
  3. NICOTINE POLACRILEX [Suspect]
     Indication: SMOKING CESSATION THERAPY
     Dosage: 2 MG, 1 PIECE GUM X 2
     Route: 002
     Dates: start: 20100719, end: 20100719

REACTIONS (1)
  - AMPHETAMINES POSITIVE [None]
